FAERS Safety Report 20429964 (Version 1)
Quarter: 2022Q1

REPORT INFORMATION
  Report Type: Report from Study
  Country: FR (occurrence: FR)
  Receive Date: 20220204
  Receipt Date: 20220204
  Transmission Date: 20220423
  Serious: Yes (Hospitalization)
  Sender: FDA-Public Use
  Company Number: FR-SERVIER-S19004705

PATIENT

DRUGS (8)
  1. ONCASPAR [Suspect]
     Active Substance: PEGASPARGASE
     Indication: Acute lymphocytic leukaemia
     Dosage: 1650 IU, QD, D15, D43
     Route: 042
     Dates: start: 20181121
  2. CYCLOPHOSPHAMIDE [Concomitant]
     Active Substance: CYCLOPHOSPHAMIDE
     Indication: Acute lymphocytic leukaemia
     Dosage: 660 MG, QD, D1, D29
     Route: 042
     Dates: start: 20181107
  3. MERCAPTOPURINE [Concomitant]
     Active Substance: MERCAPTOPURINE
     Indication: Acute lymphocytic leukaemia
     Dosage: 40 MG, QD, D1 TO D14, D29 TO D42
     Route: 048
     Dates: start: 20181107
  4. CYTARABINE [Concomitant]
     Active Substance: CYTARABINE
     Indication: Acute lymphocytic leukaemia
     Dosage: 50 MG, QD, D3 TO D6, D10 TO D13, D31 TO D34
     Route: 042
     Dates: start: 20181109
  5. CYTARABINE [Concomitant]
     Active Substance: CYTARABINE
     Dosage: 30 MG, QD, D3,D31
     Route: 037
     Dates: start: 20181109
  6. VINCRISTINE [Concomitant]
     Active Substance: VINCRISTINE
     Indication: Acute lymphocytic leukaemia
     Dosage: 0.9 MG, QD, D15, D22, D43, D50
     Route: 042
     Dates: start: 20181121
  7. METHOTREXATE [Concomitant]
     Active Substance: METHOTREXATE
     Indication: Acute lymphocytic leukaemia
     Dosage: 12 MG, QD, D3, D31
     Route: 037
     Dates: start: 20181109
  8. PREDNISOLONE [Concomitant]
     Active Substance: PREDNISOLONE
     Indication: Acute lymphocytic leukaemia
     Dosage: 15 MG, QD, D3, D31
     Route: 037
     Dates: start: 20181109

REACTIONS (2)
  - Hepatitis cholestatic [Recovered/Resolved]
  - Febrile bone marrow aplasia [Recovering/Resolving]

NARRATIVE: CASE EVENT DATE: 20181207
